FAERS Safety Report 12677775 (Version 1)
Quarter: 2016Q3

REPORT INFORMATION
  Report Type: Spontaneous
  Country: US (occurrence: US)
  Receive Date: 20160823
  Receipt Date: 20160823
  Transmission Date: 20161109
  Serious: No
  Sender: FDA-Public Use
  Company Number: US-FRI-1000084647

PATIENT
  Age: 31 Year

DRUGS (2)
  1. ABILIFY [Suspect]
     Active Substance: ARIPIPRAZOLE
  2. SAPHRIS [Suspect]
     Active Substance: ASENAPINE MALEATE

REACTIONS (1)
  - Myalgia [Unknown]
